FAERS Safety Report 8394891-X (Version None)
Quarter: 2012Q2

REPORT INFORMATION
  Report Type: 
  Country: None (occurrence: None)
  Receive Date: 20120530
  Receipt Date: 20120517
  Transmission Date: 20120825
  Serious: Yes (Other)
  Sender: FDA-Public Use
  Company Number: US-MYLANLABS-2012S1010559

PATIENT
  Age: 30 Year
  Sex: Female

DRUGS (2)
  1. CYCLOBENAZPRINE [Suspect]
     Route: 065
  2. AMITRIPTYLINE HCL [Suspect]
     Route: 065

REACTIONS (1)
  - CIRCULATORY COLLAPSE [None]
